FAERS Safety Report 9523884 (Version 1)
Quarter: 2013Q1

REPORT INFORMATION
  Report Type: Spontaneous
  Country: US (occurrence: None)
  Receive Date: 20130305
  Receipt Date: 20130305
  Transmission Date: 20140127
  Serious: Yes (Hospitalization)
  Sender: FDA-Public Use
  Company Number: 163-21880-12031741

PATIENT
  Age: 80 Year
  Sex: Female
  Weight: 72.58 kg

DRUGS (2)
  1. REVLIMID [Suspect]
     Indication: BLOOD DISORDER
     Route: 048
     Dates: start: 201202
  2. REVLIMID [Suspect]
     Indication: MYELOFIBROSIS
     Route: 048
     Dates: start: 201202

REACTIONS (4)
  - Cardiac fibrillation [None]
  - Pneumonia [None]
  - Fluid retention [None]
  - Cellulitis [None]
